FAERS Safety Report 13081893 (Version 3)
Quarter: 2017Q1

REPORT INFORMATION
  Report Type: Spontaneous
  Country: US (occurrence: US)
  Receive Date: 20170103
  Receipt Date: 20170329
  Transmission Date: 20170428
  Serious: No
  Sender: FDA-Public Use
  Company Number: PHEH2016US034167

PATIENT
  Sex: Female
  Weight: 49.89 kg

DRUGS (1)
  1. ZOFRAN [Suspect]
     Active Substance: ONDANSETRON HYDROCHLORIDE
     Indication: VOMITING IN PREGNANCY
     Dosage: 4 MG, PRN
     Route: 048
     Dates: start: 20140627, end: 20140830

REACTIONS (3)
  - Product use issue [Unknown]
  - Maternal exposure during pregnancy [Unknown]
  - Injury [Unknown]
